FAERS Safety Report 5490267-3 (Version None)
Quarter: 2007Q4

REPORT INFORMATION
  Report Type: 
  Country: None (occurrence: None)
  Receive Date: 20071015
  Receipt Date: 20070629
  Transmission Date: 20080405
  Serious: No
  Sender: FDA-Public Use
  Company Number: 2007SP002426

PATIENT
  Age: 58 Year
  Sex: Male
  Weight: 115.6672 kg

DRUGS (8)
  1. LUNESTA [Suspect]
     Indication: INSOMNIA
     Dosage: 2 MG; HS; ORAL, 4 MG; HS; ORAL, 3 MG; HS; ORAL
     Route: 048
     Dates: start: 20070621, end: 20070628
  2. LUNESTA [Suspect]
     Indication: INSOMNIA
     Dosage: 2 MG; HS; ORAL, 4 MG; HS; ORAL, 3 MG; HS; ORAL
     Route: 048
     Dates: start: 20070629, end: 20070701
  3. LUNESTA [Suspect]
     Indication: INSOMNIA
     Dosage: 2 MG; HS; ORAL, 4 MG; HS; ORAL, 3 MG; HS; ORAL
     Route: 048
     Dates: start: 20070702
  4. ATENOLOL [Concomitant]
  5. DYAZIDE [Concomitant]
  6. CLARITIN [Concomitant]
  7. SERAX [Concomitant]
  8. DIPHENHYDRAMINE HCL [Concomitant]

REACTIONS (3)
  - ABNORMAL DREAMS [None]
  - DYSGEUSIA [None]
  - MIDDLE INSOMNIA [None]
